FAERS Safety Report 19831563 (Version 1)
Quarter: 2021Q3

REPORT INFORMATION
  Report Type: Spontaneous
  Country: US (occurrence: US)
  Receive Date: 20210914
  Receipt Date: 20210914
  Transmission Date: 20211014
  Serious: No
  Sender: FDA-Public Use
  Company Number: None

PATIENT
  Sex: Female

DRUGS (2)
  1. RASUVO [Suspect]
     Active Substance: METHOTREXATE SODIUM
     Indication: RHEUMATIC DISORDER
     Dosage: OTHER DOSE:15MG/.3ML;?
     Route: 058
     Dates: start: 202108
  2. RASUVO [Suspect]
     Active Substance: METHOTREXATE SODIUM
     Indication: POLYARTHRITIS
     Dosage: OTHER DOSE:15MG/.3ML;?
     Route: 058
     Dates: start: 202108

REACTIONS (1)
  - Drug ineffective [None]
